FAERS Safety Report 12334472 (Version 2)
Quarter: 2016Q2

REPORT INFORMATION
  Report Type: Spontaneous
  Country: SE (occurrence: SE)
  Receive Date: 20160504
  Receipt Date: 20160505
  Transmission Date: 20160815
  Serious: Yes (Life-Threatening, Disabling)
  Sender: FDA-Public Use
  Company Number: SE-JNJFOC-20160500585

PATIENT
  Age: 29 Year
  Sex: Male

DRUGS (3)
  1. CONCERTA [Suspect]
     Active Substance: METHYLPHENIDATE HYDROCHLORIDE
     Indication: ATTENTION DEFICIT/HYPERACTIVITY DISORDER
     Route: 048
     Dates: start: 2010, end: 201510
  2. LITHIONIT [Concomitant]
     Active Substance: LITHIUM SULFATE
     Indication: PRODUCT USED FOR UNKNOWN INDICATION
     Route: 065
  3. CONCERTA [Suspect]
     Active Substance: METHYLPHENIDATE HYDROCHLORIDE
     Indication: ATTENTION DEFICIT/HYPERACTIVITY DISORDER
     Route: 048
     Dates: start: 201510, end: 20151211

REACTIONS (1)
  - Cardiac failure chronic [Recovered/Resolved with Sequelae]

NARRATIVE: CASE EVENT DATE: 20151221
